FAERS Safety Report 8144323-1 (Version None)
Quarter: 2012Q1

REPORT INFORMATION
  Report Type: 
  Country: None (occurrence: None)
  Receive Date: 20120217
  Receipt Date: 20120209
  Transmission Date: 20120608
  Serious: Yes (Hospitalization)
  Sender: FDA-Public Use
  Company Number: JP-JNJFOC-20111004709

PATIENT
  Age: 51 Year
  Sex: Male

DRUGS (6)
  1. DEPAKENE [Suspect]
     Route: 048
  2. DEPAKENE [Suspect]
     Route: 048
  3. TOPIRAMATE [Suspect]
     Route: 048
     Dates: end: 20110901
  4. DEPAKENE [Suspect]
     Indication: EPILEPSY
     Route: 048
  5. DEPAKENE [Suspect]
     Route: 048
  6. TOPIRAMATE [Suspect]
     Indication: EPILEPSY
     Route: 048

REACTIONS (4)
  - CONVULSION [None]
  - DISEASE RECURRENCE [None]
  - SOMNOLENCE [None]
  - DISORIENTATION [None]
